FAERS Safety Report 13020229 (Version 5)
Quarter: 2017Q2

REPORT INFORMATION
  Report Type: Report from Study
  Country: US (occurrence: US)
  Receive Date: 20161212
  Receipt Date: 20170407
  Transmission Date: 20170830
  Serious: Yes (Other)
  Sender: FDA-Public Use
  Company Number: US-PFIZER INC-2016564341

PATIENT
  Age: 56 Year
  Sex: Female

DRUGS (3)
  1. IBRANCE [Suspect]
     Active Substance: PALBOCICLIB
     Dosage: 125 MG, DAILY
     Route: 048
     Dates: start: 2016
  2. IBRANCE [Suspect]
     Active Substance: PALBOCICLIB
     Indication: BREAST CANCER METASTATIC
     Dosage: 125 MG, DAILY
     Route: 048
     Dates: start: 20160818, end: 2016
  3. IBRANCE [Suspect]
     Active Substance: PALBOCICLIB
     Dosage: 125 MG, CYCLIC (21DAYS/28)
     Route: 048
     Dates: start: 20160829, end: 201703

REACTIONS (12)
  - Bone pain [Not Recovered/Not Resolved]
  - Neoplasm progression [Recovered/Resolved with Sequelae]
  - Dry skin [Not Recovered/Not Resolved]
  - Joint swelling [Unknown]
  - Hyperthyroidism [Unknown]
  - Rhinorrhoea [Unknown]
  - Bone marrow failure [Recovered/Resolved with Sequelae]
  - Laboratory test abnormal [Unknown]
  - Fatigue [Not Recovered/Not Resolved]
  - Rash [Not Recovered/Not Resolved]
  - Leukopenia [Recovered/Resolved with Sequelae]
  - Productive cough [Unknown]

NARRATIVE: CASE EVENT DATE: 2016
